FAERS Safety Report 8509470-0 (Version None)
Quarter: 2012Q3

REPORT INFORMATION
  Report Type: 
  Country: None (occurrence: None)
  Receive Date: 20120713
  Receipt Date: 20120705
  Transmission Date: 20120928
  Serious: Yes (Life-Threatening, Hospitalization, Other)
  Sender: FDA-Public Use
  Company Number: ES-ABBOTT-12P-144-0895146-02

PATIENT
  Age: 33 Year
  Sex: Female

DRUGS (11)
  1. HUMIRA [Suspect]
     Route: 058
     Dates: start: 20100801, end: 20100928
  2. METRONIDAZOLE [Concomitant]
     Indication: SURGERY
     Dates: start: 20101104, end: 20101106
  3. CEFTRIAXONE [Concomitant]
     Indication: SURGERY
     Dates: start: 20101104, end: 20101106
  4. HUMIRA [Suspect]
     Route: 058
  5. WARFARIN SODIUM [Concomitant]
     Indication: ANTICOAGULANT THERAPY
     Dates: start: 20091226
  6. HUMIRA [Suspect]
     Indication: CROHN'S DISEASE
     Route: 058
     Dates: start: 20070814
  7. HUMIRA [Suspect]
     Dosage: BASELINE
     Route: 058
     Dates: start: 20090107, end: 20090107
  8. HUMIRA [Suspect]
     Dosage: WEEK 2
     Route: 058
  9. SOMATOSTATIN [Concomitant]
     Indication: INTESTINAL FISTULA
     Route: 042
     Dates: start: 20101108, end: 20101201
  10. PREDNISONE [Concomitant]
     Indication: PRODUCT USED FOR UNKNOWN INDICATION
     Route: 030
     Dates: start: 20100901
  11. MEROPENEM [Concomitant]
     Indication: ABDOMINAL ABSCESS
     Dates: start: 20101108, end: 20101122

REACTIONS (2)
  - CHOLECYSTITIS ACUTE [None]
  - CHOLELITHIASIS [None]
